FAERS Safety Report 4317410-3 (Version None)
Quarter: 2004Q1

REPORT INFORMATION
  Report Type: 
  Country: None (occurrence: None)
  Receive Date: 20040312
  Receipt Date: 20040302
  Transmission Date: 20041129
  Serious: Yes (Hospitalization)
  Sender: FDA-Public Use
  Company Number: 2004202223GB

PATIENT
  Sex: Male

DRUGS (1)
  1. BEXTRA (VALECOXIB) TABLET [Suspect]
     Dosage: UNK, ORAL
     Route: 048

REACTIONS (2)
  - PAIN [None]
  - RASH [None]
